FAERS Safety Report 5346381-6 (Version None)
Quarter: 2007Q2

REPORT INFORMATION
  Report Type: 
  Country: None (occurrence: None)
  Receive Date: 20070605
  Receipt Date: 20070523
  Transmission Date: 20071010
  Serious: Yes (Life-Threatening)
  Sender: FDA-Public Use
  Company Number: IT-ELI_LILLY_AND_COMPANY-IT200705006079

PATIENT
  Age: 59 Year
  Sex: Female

DRUGS (1)
  1. OPTRUMA [Suspect]
     Dosage: 60 MG, DAILY (1/D)
     Route: 048
     Dates: start: 20070508, end: 20070514

REACTIONS (3)
  - CHOKING SENSATION [None]
  - PRURITUS [None]
  - URTICARIA LOCALISED [None]
